FAERS Safety Report 6355856-2 (Version None)
Quarter: 2009Q3

REPORT INFORMATION
  Report Type: 
  Country: None (occurrence: None)
  Receive Date: 20090915
  Receipt Date: 20090902
  Transmission Date: 20100115
  Serious: No
  Sender: FDA-Public Use
  Company Number: US-B.I. PHARMACEUTICALS,INC./RIDGEFIELD-2009-BP-09384BP

PATIENT
  Age: 73 Year
  Sex: Female
  Weight: 70.76 kg

DRUGS (5)
  1. AGGRENOX [Suspect]
     Indication: MEMORY IMPAIRMENT
     Dosage: 50MG/400MG
  2. OMEPRAZOLE [Concomitant]
  3. ZOCOR [Concomitant]
  4. TRAMADOL HCL [Concomitant]
  5. ARICEPT [Concomitant]

REACTIONS (1)
  - NAUSEA [None]
